FAERS Safety Report 16624583 (Version 1)
Quarter: 2019Q3

REPORT INFORMATION
  Report Type: Report from Study
  Country: IT (occurrence: IT)
  Receive Date: 20190724
  Receipt Date: 20190724
  Transmission Date: 20191004
  Serious: Yes (Hospitalization)
  Sender: FDA-Public Use
  Company Number: IT-TEVA-2019-IT-1081863

PATIENT
  Age: 30 Year
  Sex: Male

DRUGS (2)
  1. EN [Suspect]
     Active Substance: DELORAZEPAM
     Dates: start: 20190417, end: 20190419
  2. MIRTAZAPINE. [Suspect]
     Active Substance: MIRTAZAPINE
     Dates: start: 20190417, end: 20190419

REACTIONS (3)
  - Sopor [Not Recovered/Not Resolved]
  - Psychomotor hyperactivity [Not Recovered/Not Resolved]
  - Drug abuse [Not Recovered/Not Resolved]

NARRATIVE: CASE EVENT DATE: 20190419
